FAERS Safety Report 9625897 (Version 1)
Quarter: 2013Q4

REPORT INFORMATION
  Report Type: Spontaneous
  Country: TH (occurrence: TH)
  Receive Date: 20131016
  Receipt Date: 20131016
  Transmission Date: 20140711
  Serious: Yes (Hospitalization, Other)
  Sender: FDA-Public Use
  Company Number: TH-BAYER-2013-123080

PATIENT
  Age: 78 Year
  Sex: Male

DRUGS (1)
  1. GADOVIST [Suspect]
     Indication: NUCLEAR MAGNETIC RESONANCE IMAGING ABDOMINAL
     Dosage: 5.3 ML, ONCE
     Route: 042
     Dates: start: 20131010, end: 20131010

REACTIONS (10)
  - Loss of consciousness [None]
  - Bronchospasm [None]
  - Wheezing [None]
  - Blood pressure immeasurable [None]
  - Heart rate decreased [None]
  - Cyanosis [None]
  - Dyspnoea [None]
  - Cough [None]
  - Hypotension [None]
  - Oxygen saturation decreased [None]
